FAERS Safety Report 7816053-4 (Version None)
Quarter: 2011Q4

REPORT INFORMATION
  Report Type: 
  Country: None (occurrence: None)
  Receive Date: 20111015
  Receipt Date: 20111005
  Transmission Date: 20120403
  Serious: Yes (Hospitalization)
  Sender: FDA-Public Use
  Company Number: US-ASTRAZENECA-2011SE48646

PATIENT
  Age: 63 Year
  Sex: Male
  Weight: 155.1 kg

DRUGS (7)
  1. SEREVENT [Concomitant]
  2. COUMADIN [Concomitant]
     Indication: THROMBOSIS
     Dosage: 7.5 QD
     Route: 048
  3. ALLOPURINOL [Concomitant]
     Indication: GOUT
     Dosage: 7.5 QD
     Route: 048
  4. DRONEDARONE HCL [Concomitant]
  5. SYMBICORT [Suspect]
     Indication: CHRONIC OBSTRUCTIVE PULMONARY DISEASE
     Dosage: TWO PUFFS TWO TIMES A DAY
     Route: 055
     Dates: start: 20050901
  6. SPIRIVA [Suspect]
     Indication: CHRONIC OBSTRUCTIVE PULMONARY DISEASE
     Dosage: ONCE DAILY
     Dates: start: 20050901
  7. PROBENECID [Concomitant]
     Indication: GOUT
     Dosage: 7.5 QD
     Route: 048

REACTIONS (5)
  - DRUG INEFFECTIVE [None]
  - HEART RATE INCREASED [None]
  - ATRIAL FLUTTER [None]
  - CHRONIC OBSTRUCTIVE PULMONARY DISEASE [None]
  - CARDIAC FAILURE CHRONIC [None]
